FAERS Safety Report 23764161 (Version 3)
Quarter: 2024Q2

REPORT INFORMATION
  Report Type: Report from Study
  Country: TW (occurrence: TW)
  Receive Date: 20240419
  Receipt Date: 20240627
  Transmission Date: 20240715
  Serious: Yes (Death, Hospitalization)
  Sender: FDA-Public Use
  Company Number: TW-JNJFOC-20240436306

PATIENT
  Age: 58 Year
  Sex: Male

DRUGS (1)
  1. RYBREVANT [Suspect]
     Active Substance: AMIVANTAMAB-VMJW
     Indication: Lung neoplasm malignant
     Route: 041
     Dates: start: 20240402

REACTIONS (6)
  - Lung neoplasm malignant [Fatal]
  - Sepsis [Fatal]
  - White blood cell count increased [Not Recovered/Not Resolved]
  - Skin wound [Not Recovered/Not Resolved]
  - Skin wound [Not Recovered/Not Resolved]
  - Pyrexia [Not Recovered/Not Resolved]

NARRATIVE: CASE EVENT DATE: 20240406
